FAERS Safety Report 25157051 (Version 1)
Quarter: 2025Q2

REPORT INFORMATION
  Report Type: Spontaneous
  Country: US (occurrence: US)
  Receive Date: 20250403
  Receipt Date: 20250403
  Transmission Date: 20250717
  Serious: Yes (Other)
  Sender: Kenvue
  Company Number: US-KENVUE-20250309099

PATIENT
  Age: 80 Year
  Sex: Female

DRUGS (15)
  1. TYLENOL [Suspect]
     Active Substance: ACETAMINOPHEN
     Indication: Product used for unknown indication
     Route: 065
  2. PREDNISONE [Suspect]
     Active Substance: PREDNISONE
     Indication: Rheumatoid arthritis
     Route: 065
     Dates: start: 202007
  3. METHOTREXATE [Suspect]
     Active Substance: METHOTREXATE
     Indication: Rheumatoid arthritis
     Route: 065
     Dates: start: 202007
  4. METHOTREXATE [Suspect]
     Active Substance: METHOTREXATE
     Route: 065
     Dates: start: 202302
  5. PROVENTIL HFA [Suspect]
     Active Substance: ALBUTEROL SULFATE
     Indication: Product used for unknown indication
     Route: 065
  6. FOSAMAX [Suspect]
     Active Substance: ALENDRONATE SODIUM
     Indication: Product used for unknown indication
     Route: 065
  7. FOLVITE [Suspect]
     Active Substance: FOLIC ACID
     Indication: Product used for unknown indication
     Route: 065
  8. NEURONTIN [Suspect]
     Active Substance: GABAPENTIN
     Indication: Product used for unknown indication
     Route: 065
  9. ADVIL [Suspect]
     Active Substance: IBUPROFEN
     Indication: Product used for unknown indication
     Route: 065
  10. LEVOTHYROXINE [Suspect]
     Active Substance: LEVOTHYROXINE
     Indication: Product used for unknown indication
     Route: 065
  11. RHEUMATREX [Suspect]
     Active Substance: METHOTREXATE SODIUM
     Indication: Product used for unknown indication
     Route: 065
  12. UNSPECIFIED INGREDIENT [Suspect]
     Active Substance: UNSPECIFIED INGREDIENT
     Indication: Back pain
     Dates: start: 202105
  13. ENBREL [Suspect]
     Active Substance: ETANERCEPT
     Indication: Product used for unknown indication
     Route: 065
     Dates: start: 202302
  14. ENBREL [Suspect]
     Active Substance: ETANERCEPT
     Route: 065
     Dates: start: 202402
  15. AMJEVITA [Suspect]
     Active Substance: ADALIMUMAB-ATTO
     Indication: Arthritis
     Route: 065
     Dates: end: 2024

REACTIONS (12)
  - Rheumatoid arthritis [Not Recovered/Not Resolved]
  - Autoimmune thyroiditis [Unknown]
  - Compression fracture [Unknown]
  - Bronchiectasis [Unknown]
  - Aortic arteriosclerosis [Unknown]
  - Connective tissue disease-associated interstitial lung disease [Unknown]
  - Urticaria chronic [Unknown]
  - COVID-19 [Unknown]
  - Osteopenia [Unknown]
  - Pain in extremity [Recovering/Resolving]
  - Genital herpes simplex [Unknown]
  - Blood pressure decreased [Unknown]

NARRATIVE: CASE EVENT DATE: 20210401
